FAERS Safety Report 9916572 (Version 2)
Quarter: 2014Q2

REPORT INFORMATION
  Report Type: Spontaneous
  Country: GB (occurrence: None)
  Receive Date: 20140219
  Receipt Date: 20140626
  Transmission Date: 20141212
  Serious: Yes (Other)
  Sender: FDA-Public Use
  Company Number: AUR-APL-2014-01829

PATIENT
  Sex: Female

DRUGS (7)
  1. MONTELUKAST 10 MG (MONTELUKAST) [Suspect]
     Indication: PRODUCT USED FOR UNKNOWN INDICATION
     Dosage: (10 MG), UNKNOWN
     Dates: start: 201309
  2. RANITIDINE 150 MG (RANITIDINE) [Suspect]
     Indication: PRODUCT USED FOR UNKNOWN INDICATION
     Dosage: 300 MG, (150 MG, 2 IN 1 D), UNKNOWN
  3. CETIRIZINE (CETIRIZINE) [Suspect]
     Indication: URTICARIA
     Dosage: (10 MG), UNKNOWN
  4. CETIRIZINE (CETIRIZINE) [Suspect]
     Indication: ANGIOEDEMA
     Dosage: (10 MG), UNKNOWN
  5. CICLOSPORIN (CICLOSPORIN) [Suspect]
     Indication: PRODUCT USED FOR UNKNOWN INDICATION
     Dates: start: 201310
  6. FEXOFENADINE HYDROCHLORIDE [Suspect]
     Indication: PRODUCT USED FOR UNKNOWN INDICATION
     Dosage: (360 MG, 1 D), UNKNOWN
  7. HYDROXYZINE (HYDROXYZINE) [Suspect]
     Indication: PRODUCT USED FOR UNKNOWN INDICATION
     Dosage: (50 MG), UNKNOWN

REACTIONS (6)
  - Chronic spontaneous urticaria [None]
  - Condition aggravated [None]
  - Angioedema [None]
  - Pruritus [None]
  - Drug ineffective [None]
  - Insomnia [None]
